FAERS Safety Report 9269946 (Version 1)
Quarter: 2013Q2

REPORT INFORMATION
  Report Type: Spontaneous
  Country: US (occurrence: US)
  Receive Date: 20130503
  Receipt Date: 20130503
  Transmission Date: 20140414
  Serious: No
  Sender: FDA-Public Use
  Company Number: US-009507513-1304USA016697

PATIENT
  Age: 36 Year
  Sex: Female
  Weight: 54.42 kg

DRUGS (1)
  1. NUVARING [Suspect]
     Indication: CONTRACEPTION
     Dosage: 3 WEEKS, ONE WEEK RING FREE BREAK
     Route: 067
     Dates: start: 20130419

REACTIONS (2)
  - Metrorrhagia [Unknown]
  - Exposure during breast feeding [Unknown]
